FAERS Safety Report 7133498-9 (Version None)
Quarter: 2010Q4

REPORT INFORMATION
  Report Type: 
  Country: None (occurrence: None)
  Receive Date: 20101202
  Receipt Date: 20101130
  Transmission Date: 20110411
  Serious: Yes (Other)
  Sender: FDA-Public Use
  Company Number: AU-PFIZER INC-2010128407

PATIENT
  Age: 36 Year
  Sex: Male
  Weight: 97 kg

DRUGS (2)
  1. CHAMPIX [Suspect]
     Indication: SMOKING CESSATION THERAPY
     Dosage: 0.5 MG, 1X/DAY
     Route: 048
  2. CANNABIS [Suspect]
     Dosage: UNK

REACTIONS (8)
  - ANGER [None]
  - ANXIETY [None]
  - DEPRESSION [None]
  - DISINHIBITION [None]
  - DRUG ABUSE [None]
  - HALLUCINATION [None]
  - NIGHTMARE [None]
  - SUICIDAL IDEATION [None]
